FAERS Safety Report 4616723-5 (Version None)
Quarter: 2005Q1

REPORT INFORMATION
  Report Type: 
  Country: None (occurrence: None)
  Receive Date: 20050321
  Receipt Date: 20030703
  Transmission Date: 20050727
  Serious: No
  Sender: FDA-Public Use
  Company Number: 6187

PATIENT
  Age: 86 Year
  Sex: Female

DRUGS (8)
  1. AMIODARONE [Suspect]
     Indication: ARRHYTHMIA
     Dosage: PO
     Route: 048
     Dates: start: 20030307, end: 20030626
  2. ACETYLSALICYLIC ACID SRT [Concomitant]
  3. SIMVASTATIN [Concomitant]
  4. CALCIUM CARBONATE [Concomitant]
  5. LACTULOSE [Concomitant]
  6. HYDROCORTISONE [Concomitant]
  7. CEPHALEXIN [Concomitant]
  8. AQUEOUS CREAM [Concomitant]

REACTIONS (1)
  - PHOTOSENSITIVITY REACTION [None]
